FAERS Safety Report 6061387-X (Version None)
Quarter: 2009Q1

REPORT INFORMATION
  Report Type: 
  Country: None (occurrence: None)
  Receive Date: 20090202
  Receipt Date: 20081205
  Transmission Date: 20090719
  Serious: No
  Sender: FDA-Public Use
  Company Number: US-BAYER-200840141NA

PATIENT
  Age: 79 Year
  Sex: Female
  Weight: 73 kg

DRUGS (7)
  1. MAGNEVIST [Suspect]
     Indication: NUCLEAR MAGNETIC RESONANCE IMAGING BRAIN
     Dosage: TOTAL DAILY DOSE: 15 ML
     Route: 042
     Dates: start: 20081204, end: 20081204
  2. LIPITOR [Concomitant]
  3. LOTREL [Concomitant]
  4. SYNTHROID [Concomitant]
  5. COLACE [Concomitant]
  6. ASPIRIN [Concomitant]
     Dosage: AS USED: 81 MG
  7. MULTIPLE VITAMINS [Concomitant]

REACTIONS (1)
  - DYSGEUSIA [None]
